FAERS Safety Report 9994405 (Version 2)
Quarter: 2014Q1

REPORT INFORMATION
  Report Type: Spontaneous
  Country: US (occurrence: US)
  Receive Date: 20140311
  Receipt Date: 20140321
  Transmission Date: 20141002
  Serious: Yes (Other)
  Sender: FDA-Public Use
  Company Number: US-BIOGENIDEC-2014BI021955

PATIENT
  Age: 64 Year
  Sex: Female

DRUGS (3)
  1. TYSABRI [Suspect]
     Indication: MULTIPLE SCLEROSIS
     Route: 042
     Dates: start: 20070507, end: 20130722
  2. KLONOPIN [Concomitant]
  3. ZOLOFT [Concomitant]

REACTIONS (3)
  - Malignant melanoma [Unknown]
  - Deep vein thrombosis [Unknown]
  - Multiple sclerosis relapse [Unknown]
